FAERS Safety Report 6214348-1 (Version None)
Quarter: 2009Q2

REPORT INFORMATION
  Report Type: 
  Country: None (occurrence: None)
  Receive Date: 20090602
  Receipt Date: 20090528
  Transmission Date: 20091009
  Serious: Yes (Life-Threatening, Hospitalization)
  Sender: FDA-Public Use
  Company Number: 2009SP011323

PATIENT
  Age: 40 Year
  Sex: Female

DRUGS (5)
  1. BETAMETHASONE SODIUM PHOSPHATE [Suspect]
     Indication: ANGIOEDEMA
     Dosage: 8 MG;TIW;IM
     Route: 030
     Dates: start: 20090201, end: 20090407
  2. ANAHELP (EPINEPHRINE) [Suspect]
     Indication: ANGIOEDEMA
     Dosage: TIW;IM
     Route: 030
     Dates: start: 20090201, end: 20090407
  3. GLUCOPHAGE [Concomitant]
  4. IXEL [Concomitant]
  5. XANAX [Concomitant]

REACTIONS (2)
  - DIABETIC KETOACIDOSIS [None]
  - WEIGHT DECREASED [None]
